FAERS Safety Report 6168409-6 (Version None)
Quarter: 2009Q2

REPORT INFORMATION
  Report Type: 
  Country: None (occurrence: None)
  Receive Date: 20090427
  Receipt Date: 20090417
  Transmission Date: 20091009
  Serious: Yes (Hospitalization)
  Sender: FDA-Public Use
  Company Number: A0351514A

PATIENT
  Age: 54 Year
  Sex: Female
  Weight: 154.5 kg

DRUGS (6)
  1. AVANDIA [Suspect]
     Dosage: 8MG PER DAY
     Route: 048
     Dates: start: 19990101, end: 20070101
  2. PRILOSEC [Concomitant]
  3. GLUCOPHAGE [Concomitant]
  4. FOLIC ACID [Concomitant]
  5. VITAMINS [Concomitant]
  6. GEMFIBROZIL [Concomitant]

REACTIONS (6)
  - CARDIAC FAILURE CONGESTIVE [None]
  - CHEST PAIN [None]
  - DYSPNOEA [None]
  - EXERCISE TOLERANCE DECREASED [None]
  - PULMONARY HYPERTENSION [None]
  - WEIGHT INCREASED [None]
